FAERS Safety Report 8295715-1 (Version None)
Quarter: 2012Q2

REPORT INFORMATION
  Report Type: 
  Country: None (occurrence: None)
  Receive Date: 20120418
  Receipt Date: 20120412
  Transmission Date: 20120825
  Serious: Yes (Other)
  Sender: FDA-Public Use
  Company Number: PHHY2012GB031837

PATIENT

DRUGS (1)
  1. OMNITROPE [Suspect]
     Dosage: 6.7 MG, UNK
     Route: 058

REACTIONS (1)
  - DRUG ABUSE [None]
